FAERS Safety Report 10865101 (Version 1)
Quarter: 2015Q1

REPORT INFORMATION
  Report Type: Report from Study
  Country: BR (occurrence: BR)
  Receive Date: 20150224
  Receipt Date: 20150224
  Transmission Date: 20150721
  Serious: Yes (Other)
  Sender: FDA-Public Use
  Company Number: PHHY2015BR021302

PATIENT
  Age: 77 Year
  Sex: Male

DRUGS (1)
  1. DIOVAN AMLO [Suspect]
     Active Substance: AMLODIPINE\VALSARTAN
     Indication: HYPERTENSION
     Dosage: 160/5 MG, QD (WHEN HIS BLOOD PRESSURE WAS 15, IF IT WAS BELOW HE SHOULD NOT USE IT)
     Route: 065

REACTIONS (3)
  - Renal necrosis [Recovering/Resolving]
  - Neck mass [Not Recovered/Not Resolved]
  - Renal vessel disorder [Unknown]

NARRATIVE: CASE EVENT DATE: 200906
